FAERS Safety Report 20534261 (Version 10)
Quarter: 2025Q2

REPORT INFORMATION
  Report Type: Report from Study
  Country: US (occurrence: US)
  Receive Date: 20220301
  Receipt Date: 20250408
  Transmission Date: 20250716
  Serious: Yes (Hospitalization, Disabling, Other)
  Sender: ABBVIE
  Company Number: US-ABBVIE-22K-163-4292881-00

PATIENT
  Age: 77 Year
  Sex: Female

DRUGS (8)
  1. HUMIRA [Suspect]
     Active Substance: ADALIMUMAB
     Indication: Psoriasis
     Route: 058
     Dates: start: 2014
  2. HUMIRA [Suspect]
     Active Substance: ADALIMUMAB
     Route: 058
     Dates: start: 20190530
  3. HUMIRA [Suspect]
     Active Substance: ADALIMUMAB
     Route: 058
     Dates: start: 2020
  4. LETROZOLE [Concomitant]
     Active Substance: LETROZOLE
     Indication: Hormone suppression therapy
  5. COVID-19 vaccine [Concomitant]
     Indication: COVID-19 immunisation
     Route: 030
     Dates: start: 202104, end: 202104
  6. COVID-19 vaccine [Concomitant]
     Indication: COVID-19 immunisation
     Route: 030
     Dates: start: 202101, end: 202101
  7. PFIZER-BIONTECH COVID-19 VACCINE [Concomitant]
     Active Substance: TOZINAMERAN
     Indication: COVID-19 immunisation
     Route: 030
     Dates: start: 202101, end: 202101
  8. PFIZER-BIONTECH COVID-19 VACCINE [Concomitant]
     Active Substance: TOZINAMERAN
     Indication: COVID-19 immunisation
     Route: 030
     Dates: start: 202104, end: 202104

REACTIONS (15)
  - Corneal oedema [Not Recovered/Not Resolved]
  - Cystoid macular oedema [Recovering/Resolving]
  - Breast cancer female [Recovered/Resolved]
  - Bladder pain [Unknown]
  - Glaucoma [Not Recovered/Not Resolved]
  - Radiation injury [Not Recovered/Not Resolved]
  - Bladder disorder [Unknown]
  - Psoriasis [Unknown]
  - Macular degeneration [Recovering/Resolving]
  - Rash [Unknown]
  - Visual impairment [Unknown]
  - Back disorder [Unknown]
  - Urinary incontinence [Unknown]
  - Infection [Unknown]
  - Genital rash [Unknown]

NARRATIVE: CASE EVENT DATE: 20171130
